FAERS Safety Report 7574111 (Version 3)
Quarter: 2013Q4

REPORT INFORMATION
  Report Type: Spontaneous
  Country: US (occurrence: US)
  Receive Date: 20100907
  Receipt Date: 20131227
  Transmission Date: 20140711
  Serious: Yes (Other)
  Sender: FDA-Public Use
  Company Number: US-BAYER-201032639NA

PATIENT
  Age: 24 Year
  Sex: Female
  Weight: 85.71 kg

DRUGS (1)
  1. YAZ [Suspect]
     Indication: CONTRACEPTION
     Dosage: UNK UNK, QD
     Route: 048
     Dates: start: 2006, end: 2007

REACTIONS (2)
  - Cholecystitis chronic [None]
  - Gallbladder disorder [None]
